FAERS Safety Report 8610036 (Version 2)
Quarter: 2015Q3

REPORT INFORMATION
  Report Type: Spontaneous
  Country: US (occurrence: US)
  Receive Date: 20120612
  Receipt Date: 20150720
  Transmission Date: 20151125
  Serious: Yes (Other)
  Sender: FDA-Public Use
  Company Number: US-ASTRAZENECA-2012SE35829

PATIENT
  Age: 45 Year
  Sex: Female
  Weight: 84.4 kg

DRUGS (17)
  1. COQ10 [Concomitant]
     Active Substance: UBIDECARENONE
     Indication: SUPPLEMENTATION THERAPY
     Route: 048
  2. FISH OIL [Concomitant]
     Active Substance: FISH OIL
     Indication: CARDIAC DISORDER
     Route: 048
  3. CRESTOR [Suspect]
     Active Substance: ROSUVASTATIN CALCIUM
     Indication: BLOOD CHOLESTEROL INCREASED
     Route: 048
  4. CRESTOR [Suspect]
     Active Substance: ROSUVASTATIN CALCIUM
     Indication: ARTERIAL OCCLUSIVE DISEASE
     Route: 048
  5. CRESTOR [Suspect]
     Active Substance: ROSUVASTATIN CALCIUM
     Indication: ARTERIAL OCCLUSIVE DISEASE
     Route: 048
  6. AMOXICILLIN. [Concomitant]
     Active Substance: AMOXICILLIN
     Indication: SINUSITIS
     Route: 048
  7. INDOMETHACIN. [Concomitant]
     Active Substance: INDOMETHACIN
     Indication: LIMB DISCOMFORT
     Dosage: 50 MG TID
     Route: 048
     Dates: start: 20150709
  8. ASPIRIN. [Concomitant]
     Active Substance: ASPIRIN
     Indication: CARDIAC DISORDER
     Route: 048
  9. TRIAMTERENE HCTZ [Concomitant]
     Active Substance: HYDROCHLOROTHIAZIDE\TRIAMTERENE
     Indication: HYPERTENSION
     Dosage: 37.5/25MG DAILY
     Route: 048
     Dates: start: 1995
  10. LEVOTHYROXIN [Concomitant]
     Active Substance: LEVOTHYROXINE
     Indication: THYROID DISORDER
     Dosage: 0.088 MG DAILY
     Route: 048
  11. POTASSIUM [Concomitant]
     Active Substance: POTASSIUM
     Indication: SUPPLEMENTATION THERAPY
     Route: 048
  12. GARLIC PILL [Concomitant]
     Indication: CARDIAC DISORDER
     Route: 048
  13. INDOKANA [Concomitant]
     Indication: BLOOD PRESSURE ABNORMAL
     Route: 048
     Dates: start: 20150702
  14. VITAMIN D3 [Concomitant]
     Active Substance: CHOLECALCIFEROL
     Indication: SUPPLEMENTATION THERAPY
     Dosage: DAILY
     Route: 048
  15. CRESTOR [Suspect]
     Active Substance: ROSUVASTATIN CALCIUM
     Indication: BLOOD CHOLESTEROL INCREASED
     Route: 048
  16. JANUMET [Concomitant]
     Active Substance: METFORMIN HYDROCHLORIDE\SITAGLIPTIN PHOSPHATE
     Indication: DIABETES MELLITUS
     Dosage: 50/1000MG  MG BID
     Route: 048
     Dates: start: 1991
  17. INDOKANA [Concomitant]
     Indication: WEIGHT DECREASED
     Route: 048
     Dates: start: 20150702

REACTIONS (9)
  - Foot fracture [Unknown]
  - Sinusitis [Unknown]
  - Thyroid disorder [Unknown]
  - Diabetes mellitus [Unknown]
  - Hearing impaired [Unknown]
  - Ear pain [Unknown]
  - Peripheral swelling [Unknown]
  - Osteitis [Unknown]
  - Off label use [Unknown]

NARRATIVE: CASE EVENT DATE: 1991
